FAERS Safety Report 9571359 (Version 1)
Quarter: 2013Q4

REPORT INFORMATION
  Report Type: Spontaneous
  Country: FR (occurrence: FR)
  Receive Date: 20131001
  Receipt Date: 20131001
  Transmission Date: 20140711
  Serious: Yes (Hospitalization)
  Sender: FDA-Public Use
  Company Number: FR-NOVOPROD-388385

PATIENT
  Age: 67 Year
  Sex: Male

DRUGS (5)
  1. VICTOZA [Suspect]
     Indication: PRODUCT USED FOR UNKNOWN INDICATION
     Dosage: 1.2 MG, QD
     Route: 058
     Dates: start: 201201, end: 20130402
  2. LIPANTHYL [Concomitant]
     Dosage: UNK
     Dates: start: 2011
  3. LOXEN [Concomitant]
     Dosage: UNK
     Dates: start: 201301
  4. DIAMICRON [Concomitant]
     Dosage: UNK
     Dates: start: 201301
  5. FLUDEX                             /00340101/ [Concomitant]
     Dosage: UNK
     Dates: start: 201301, end: 201303

REACTIONS (1)
  - Urticaria chronic [Recovered/Resolved]
